FAERS Safety Report 8406838-8 (Version None)
Quarter: 2012Q2

REPORT INFORMATION
  Report Type: 
  Country: None (occurrence: None)
  Receive Date: 20120604
  Receipt Date: 20120530
  Transmission Date: 20120825
  Serious: Yes (Other)
  Sender: FDA-Public Use
  Company Number: VE-PFIZER INC-2012132015

PATIENT
  Sex: Female

DRUGS (1)
  1. NORVASC [Suspect]
     Dosage: 5 MG

REACTIONS (1)
  - WALKING DISABILITY [None]
